FAERS Safety Report 5129708-X (Version None)
Quarter: 2006Q4

REPORT INFORMATION
  Report Type: 
  Country: None (occurrence: None)
  Receive Date: 20061018
  Receipt Date: 20061011
  Transmission Date: 20070319
  Serious: Yes (Other)
  Sender: FDA-Public Use
  Company Number: FR-GLAXOSMITHKLINE-B0442513A

PATIENT
  Sex: Female

DRUGS (2)
  1. SEREVENT [Suspect]
     Indication: DRUG USE FOR UNKNOWN INDICATION
     Route: 050
     Dates: start: 20060926
  2. BRICANYL [Concomitant]

REACTIONS (2)
  - ASTHMATIC CRISIS [None]
  - DRUG INTOLERANCE [None]
